FAERS Safety Report 4580170-5 (Version None)
Quarter: 2005Q1

REPORT INFORMATION
  Report Type: 
  Country: None (occurrence: None)
  Receive Date: 20050214
  Receipt Date: 20050209
  Transmission Date: 20050727
  Serious: Yes (Hospitalization)
  Sender: FDA-Public Use
  Company Number: US-JNJFOC-20041003035

PATIENT
  Sex: Female
  Weight: 1.81 kg

DRUGS (4)
  1. DURAGESIC [Suspect]
     Route: 015
  2. PERCOCET [Suspect]
     Route: 015
  3. PERCOCET [Suspect]
     Route: 015
  4. DEMEROL [Suspect]
     Route: 015

REACTIONS (11)
  - APGAR SCORE LOW [None]
  - BRADYCARDIA FOETAL [None]
  - CAESAREAN SECTION [None]
  - DRUG EXPOSURE DURING PREGNANCY [None]
  - DRUG WITHDRAWAL SYNDROME NEONATAL [None]
  - FOETAL GROWTH RETARDATION [None]
  - FOETAL HEART RATE DECREASED [None]
  - MYOCLONUS [None]
  - PLACENTAL DISORDER [None]
  - SMALL FOR DATES BABY [None]
  - SNEEZING [None]
